FAERS Safety Report 11279637 (Version 1)
Quarter: 2015Q3

REPORT INFORMATION
  Report Type: Spontaneous
  Country: US (occurrence: US)
  Receive Date: 20150717
  Receipt Date: 20150717
  Transmission Date: 20151125
  Serious: Yes (Death, Other)
  Sender: FDA-Public Use
  Company Number: US-VIIV HEALTHCARE LIMITED-US2015090301

PATIENT
  Age: 39 Year
  Sex: Female
  Weight: 108.84 kg

DRUGS (1)
  1. COMBIVIR [Suspect]
     Active Substance: LAMIVUDINE\ZIDOVUDINE
     Indication: HIV INFECTION
     Dosage: 1 DF, BID
     Route: 048

REACTIONS (2)
  - Progressive multifocal leukoencephalopathy [Fatal]
  - Hospice care [Unknown]

NARRATIVE: CASE EVENT DATE: 20141011
